FAERS Safety Report 25238840 (Version 3)
Quarter: 2025Q3

REPORT INFORMATION
  Report Type: Spontaneous
  Country: CN (occurrence: CN)
  Receive Date: 20250425
  Receipt Date: 20250716
  Transmission Date: 20251020
  Serious: Yes (Life-Threatening, Hospitalization, Other)
  Sender: NOVARTIS
  Company Number: CN-002147023-NVSC2025CN067328

PATIENT
  Age: 2 Year
  Sex: Female
  Weight: 11 kg

DRUGS (9)
  1. TRAMETINIB [Suspect]
     Active Substance: TRAMETINIB
     Indication: Targeted cancer therapy
     Dosage: 0.375 MG, QD (PER DAY)
     Route: 048
     Dates: start: 20241028, end: 20241215
  2. TRAMETINIB [Suspect]
     Active Substance: TRAMETINIB
     Dosage: 0.25 MG, QD (PER DAY)
     Route: 048
     Dates: start: 20250219, end: 20250314
  3. TRAMETINIB [Suspect]
     Active Substance: TRAMETINIB
     Route: 048
     Dates: start: 20250314, end: 20250402
  4. TRAMETINIB [Suspect]
     Active Substance: TRAMETINIB
     Route: 048
     Dates: start: 20250405, end: 20250409
  5. AZACITIDINE [Concomitant]
     Active Substance: AZACITIDINE
     Indication: Product used for unknown indication
     Route: 058
     Dates: start: 20240719
  6. CYTARABINE [Concomitant]
     Active Substance: CYTARABINE
     Indication: Product used for unknown indication
     Route: 065
     Dates: start: 20241210
  7. FLUDARABINE [Concomitant]
     Active Substance: FLUDARABINE PHOSPHATE
     Indication: Product used for unknown indication
     Route: 065
     Dates: start: 20241210
  8. CYCLOSPORINE [Concomitant]
     Active Substance: CYCLOSPORINE
     Indication: Product used for unknown indication
     Route: 048
     Dates: end: 20250420
  9. MABTHERA [Concomitant]
     Active Substance: RITUXIMAB
     Indication: Product used for unknown indication
     Dosage: 375 MG/M2, QW (2XD)
     Route: 065
     Dates: start: 20250314

REACTIONS (8)
  - Pulmonary arterial hypertension [Recovered/Resolved]
  - Ascites [Recovered/Resolved]
  - Tricuspid valve incompetence [Recovered/Resolved]
  - Oedema [Recovered/Resolved]
  - Troponin I increased [Recovered/Resolved]
  - Tachypnoea [Recovered/Resolved]
  - Lymphoproliferative disorder [Recovered/Resolved]
  - Off label use [Unknown]

NARRATIVE: CASE EVENT DATE: 20250314
